FAERS Safety Report 8030066-1 (Version None)
Quarter: 2012Q1

REPORT INFORMATION
  Report Type: 
  Country: None (occurrence: None)
  Receive Date: 20120105
  Receipt Date: 20111221
  Transmission Date: 20120608
  Serious: Yes (Other)
  Sender: FDA-Public Use
  Company Number: CIP11000264

PATIENT
  Age: 61 Year
  Sex: Female

DRUGS (5)
  1. ACTONEL [Suspect]
     Dosage: 150 MG ONCE A MONTH, ORAL
     Route: 048
     Dates: start: 20080101, end: 20110101
  2. ACTONEL [Suspect]
     Dosage: 35 MG ONCE A WEEK, ORAL
     Route: 048
     Dates: start: 20030501, end: 20080101
  3. LIPITOR(ATROVSTATIN CALCIUM) [Concomitant]
  4. CAICIUM WITH VITAMIN D [Concomitant]
  5. METHOTREXATE [Concomitant]

REACTIONS (6)
  - MUSCULAR WEAKNESS [None]
  - FEMUR FRACTURE [None]
  - TIBIA FRACTURE [None]
  - STRESS FRACTURE [None]
  - PAIN IN EXTREMITY [None]
  - FOOT FRACTURE [None]
